FAERS Safety Report 11087247 (Version 1)
Quarter: 2015Q2

REPORT INFORMATION
  Report Type: Spontaneous
  Country: ES (occurrence: None)
  Receive Date: 20150430
  Receipt Date: 20150430
  Transmission Date: 20150821
  Serious: No
  Sender: FDA-Public Use
  Company Number: 2014-PIB-000299

PATIENT
  Age: 52 Year
  Sex: Female
  Weight: 46 kg

DRUGS (1)
  1. NEURACEQ [Suspect]
     Active Substance: FLORBETABEN F-18
     Indication: IMAGING PROCEDURE
     Route: 042
     Dates: start: 20141009, end: 20141009

REACTIONS (2)
  - Dysgeusia [None]
  - Injection site pain [None]

NARRATIVE: CASE EVENT DATE: 20141009
